FAERS Safety Report 18319933 (Version 1)
Quarter: 2020Q3

REPORT INFORMATION
  Report Type: Spontaneous
  Country: FR (occurrence: FR)
  Receive Date: 20200929
  Receipt Date: 20200929
  Transmission Date: 20201103
  Serious: Yes (Hospitalization)
  Sender: FDA-Public Use
  Company Number: FR-SUN PHARMACEUTICAL INDUSTRIES LTD-2020RR-262632

PATIENT
  Age: 64 Year
  Sex: Male
  Weight: 71 kg

DRUGS (7)
  1. BACTRIM [Suspect]
     Active Substance: SULFAMETHOXAZOLE\TRIMETHOPRIM
     Indication: NEUTROPENIA
     Dosage: 3 DOSAGE FORM, WEEKLY
     Route: 042
     Dates: start: 20200708, end: 20200722
  2. DEXAMETHASONE. [Suspect]
     Active Substance: DEXAMETHASONE
     Indication: CORONAVIRUS INFECTION
     Dosage: 4 MILLIGRAM, DAILY
     Route: 042
     Dates: start: 20200721
  3. LOVENOX [Suspect]
     Active Substance: ENOXAPARIN SODIUM
     Indication: THROMBOSIS PROPHYLAXIS
     Dosage: 0.4 MILLILITER, DAILY
     Route: 042
     Dates: start: 20200720
  4. PANTOPRAZOLE [Suspect]
     Active Substance: PANTOPRAZOLE
     Indication: ULCER
     Dosage: 20 MILLIGRAM, DAILY
     Route: 048
     Dates: start: 20200720
  5. CYMEVAN 500 MG, LYOPHILISAT POUR USAGE PARENTERAL (PERFUSION) [Suspect]
     Active Substance: GANCICLOVIR
     Indication: CYTOMEGALOVIRUS INFECTION
     Dosage: 500 MILLIGRAM, DAILY
     Route: 042
     Dates: start: 20200711, end: 20200723
  6. XATRAL 2,5 MG, COMPRIME PELLICULE [Suspect]
     Active Substance: ALFUZOSIN
     Indication: ANXIETY
     Dosage: 2.5 MILLIGRAM, DAILY
     Route: 048
     Dates: start: 20200720
  7. CEFTRIAXONE. [Suspect]
     Active Substance: CEFTRIAXONE
     Indication: PRODUCT USED FOR UNKNOWN INDICATION
     Dosage: 1 GRAM, DAILY
     Route: 042
     Dates: start: 20200506, end: 20200720

REACTIONS (4)
  - Thrombocytopenia [Not Recovered/Not Resolved]
  - Leukopenia [Not Recovered/Not Resolved]
  - Neutropenia [Not Recovered/Not Resolved]
  - Lymphopenia [Not Recovered/Not Resolved]

NARRATIVE: CASE EVENT DATE: 20200716
